FAERS Safety Report 8572662-9 (Version None)
Quarter: 2012Q3

REPORT INFORMATION
  Report Type: 
  Country: None (occurrence: None)
  Receive Date: 20120806
  Receipt Date: 20120416
  Transmission Date: 20120928
  Serious: No
  Sender: FDA-Public Use
  Company Number: US-009507513-2012SP020673

PATIENT

DRUGS (1)
  1. DR. SCHOLLS CORN REMOVERS [Suspect]
     Indication: HYPERKERATOSIS
     Dosage: UNK UNK, UNKNOWN
     Route: 061

REACTIONS (3)
  - APPLICATION SITE PAIN [None]
  - DRUG INEFFECTIVE [None]
  - SKIN EXFOLIATION [None]
